FAERS Safety Report 16424387 (Version 1)
Quarter: 2019Q2

REPORT INFORMATION
  Report Type: Spontaneous
  Country: US (occurrence: US)
  Receive Date: 20190613
  Receipt Date: 20190613
  Transmission Date: 20190711
  Serious: Yes (Hospitalization, Other)
  Sender: FDA-Public Use
  Company Number: US-ASTRAZENECA-2019SE84807

PATIENT
  Sex: Female

DRUGS (4)
  1. SYMBICORT [Suspect]
     Active Substance: BUDESONIDE\FORMOTEROL FUMARATE DIHYDRATE
     Dosage: 160/4.5 UG TWO TIMES A DAY
     Route: 055
  2. IPRATROPIUM [Concomitant]
     Active Substance: IPRATROPIUM
  3. SPIRIVA [Concomitant]
     Active Substance: TIOTROPIUM BROMIDE MONOHYDRATE
  4. ALBUTEROL. [Concomitant]
     Active Substance: ALBUTEROL

REACTIONS (7)
  - Candida infection [Unknown]
  - Obstruction [Unknown]
  - Pneumonia [Unknown]
  - Oesophageal obstruction [Unknown]
  - Vocal cord disorder [Unknown]
  - Dysphonia [Unknown]
  - Dysphagia [Unknown]
